FAERS Safety Report 4897711-0 (Version None)
Quarter: 2006Q1

REPORT INFORMATION
  Report Type: 
  Country: None (occurrence: None)
  Receive Date: 20060130
  Receipt Date: 20060130
  Transmission Date: 20060701
  Serious: No
  Sender: FDA-Public Use
  Company Number: None

PATIENT
  Age: 79 Year
  Sex: Male
  Weight: 94.3 kg

DRUGS (16)
  1. VALSARTAN [Suspect]
  2. ALLOPURINOL [Concomitant]
  3. AMLODIPINE BESYLATE [Concomitant]
  4. CLONIDINE HCL [Concomitant]
  5. METOPROLOL TARTRATE [Concomitant]
  6. SIMVASTATIN [Concomitant]
  7. FERROUS S04 [Concomitant]
  8. SODIUM POLYSTYRENE SULF [Concomitant]
  9. DOCUSATE NA [Concomitant]
  10. NOVOLIN 70/30 [Concomitant]
  11. ABSORBASE [Concomitant]
  12. TRAVOPROST 0.004% [Concomitant]
  13. KETOCONAZOLE 2% [Concomitant]
  14. SENNOSIDES [Concomitant]
  15. SIMVASTATIN [Concomitant]
  16. FLUNISOLIDE [Concomitant]

REACTIONS (1)
  - HYPERSENSITIVITY [None]
